FAERS Safety Report 4506781-0 (Version None)
Quarter: 2004Q4

REPORT INFORMATION
  Report Type: 
  Country: None (occurrence: None)
  Receive Date: 20041122
  Receipt Date: 20041112
  Transmission Date: 20050328
  Serious: Yes (Death)
  Sender: FDA-Public Use
  Company Number: US-ROCHE-386344

PATIENT
  Age: 3 Year
  Sex: Male
  Weight: 16.8 kg

DRUGS (3)
  1. VALIUM [Suspect]
     Route: 042
     Dates: start: 20040916, end: 20040916
  2. CEREBYX [Interacting]
     Indication: DRUG USE FOR UNKNOWN INDICATION
     Route: 042
     Dates: start: 20040916, end: 20040916
  3. PAVULON [Interacting]
     Indication: DRUG USE FOR UNKNOWN INDICATION
     Route: 042
     Dates: start: 20040916, end: 20040916

REACTIONS (3)
  - CARDIAC ARREST [None]
  - DRUG INTERACTION [None]
  - OVERDOSE [None]
